FAERS Safety Report 10896561 (Version 2)
Quarter: 2015Q1

REPORT INFORMATION
  Report Type: Spontaneous
  Country: SE (occurrence: None)
  Receive Date: 20150302
  Receipt Date: 20150304
  Transmission Date: 20150721
  Serious: Yes (Other)
  Sender: FDA-Public Use
  Company Number: 2012SE002139

PATIENT
  Age: 72 Year
  Sex: Male

DRUGS (3)
  1. DIMOR (LOPERAMIDE HYDROCHLORIDE) [Concomitant]
  2. ELIGARD [Suspect]
     Active Substance: LEUPROLIDE ACETATE
     Indication: PROSTATE CANCER
     Route: 058
     Dates: start: 201104
  3. BICALUTAMID (BICALUTAMIDE) [Concomitant]

REACTIONS (6)
  - Fatigue [None]
  - Prostatic specific antigen increased [None]
  - Hot flush [None]
  - Chills [None]
  - Weight increased [None]
  - Hormone-refractory prostate cancer [None]

NARRATIVE: CASE EVENT DATE: 201104
